FAERS Safety Report 7044792 (Version 7)
Quarter: 2013Q3

REPORT INFORMATION
  Report Type: Spontaneous
  Country: US (occurrence: US)
  Receive Date: 20090709
  Receipt Date: 20130920
  Transmission Date: 20140515
  Serious: Yes (Hospitalization)
  Sender: FDA-Public Use
  Company Number: US-BIOGENIDEC-2009BI020547

PATIENT
  Age: 39 Year
  Sex: Female

DRUGS (1)
  1. TYSABRI [Suspect]
     Indication: MULTIPLE SCLEROSIS
     Route: 042
     Dates: start: 20081030

REACTIONS (10)
  - Device failure [Recovered/Resolved]
  - Spinal fusion surgery [Recovered/Resolved]
  - Uterine leiomyoma [Recovered/Resolved]
  - Endometriosis [Recovered/Resolved]
  - Haemangioma [Recovered/Resolved]
  - Somnolence [Recovered/Resolved]
  - Adrenal disorder [Recovered/Resolved]
  - Muscle spasms [Not Recovered/Not Resolved]
  - Fatigue [Not Recovered/Not Resolved]
  - Pollakiuria [Not Recovered/Not Resolved]
